FAERS Safety Report 6079019-3 (Version None)
Quarter: 2009Q1

REPORT INFORMATION
  Report Type: 
  Country: None (occurrence: None)
  Receive Date: 20090216
  Receipt Date: 20090202
  Transmission Date: 20090719
  Serious: No
  Sender: FDA-Public Use
  Company Number: US-ROCHE-612119

PATIENT
  Age: 25 Year
  Sex: Female

DRUGS (2)
  1. ACCUTANE [Suspect]
     Indication: ACNE
     Route: 065
     Dates: start: 20090124, end: 20090130
  2. ORAL CONTRACEPTION [Concomitant]
     Indication: CONTRACEPTION
     Dates: end: 20090130

REACTIONS (2)
  - NO ADVERSE EVENT [None]
  - PREGNANCY [None]
